FAERS Safety Report 5719431-2 (Version None)
Quarter: 2008Q2

REPORT INFORMATION
  Report Type: 
  Country: None (occurrence: None)
  Receive Date: 20080428
  Receipt Date: 20080423
  Transmission Date: 20081010
  Serious: Yes (Death, Life-Threatening, Hospitalization)
  Sender: FDA-Public Use
  Company Number: PHHO2008DE04910

PATIENT
  Age: 41 Year
  Sex: Female
  Weight: 80.5 kg

DRUGS (6)
  1. MYCOPHENOLATE MOFETIL [Suspect]
     Indication: HEART TRANSPLANT
     Dosage: 0.75 MG, BID
     Route: 048
     Dates: start: 20080331, end: 20080410
  2. MYCOPHENOLATE MOFETIL [Suspect]
     Dosage: 0.75 MG, BID
     Route: 048
     Dates: start: 20080415
  3. CYCLOSPORINE [Suspect]
     Indication: HEART TRANSPLANT
     Dosage: 53 MG, BID
     Route: 042
     Dates: start: 20080328
  4. CYCLOSPORINE [Suspect]
     Dosage: 80 MG, BID
     Route: 042
     Dates: end: 20080422
  5. PREDNISOLONE [Suspect]
     Indication: HEART TRANSPLANT
     Dosage: 65 MG, BID
     Route: 048
     Dates: start: 20080401
  6. PREDNISOLONE [Suspect]
     Dosage: 45 MG, BID
     Route: 048
     Dates: end: 20080422

REACTIONS (13)
  - ANURIA [None]
  - ASPERGILLOSIS [None]
  - C-REACTIVE PROTEIN INCREASED [None]
  - CANDIDIASIS [None]
  - FUNGAL SEPSIS [None]
  - HYPOTENSION [None]
  - INCREASED UPPER AIRWAY SECRETION [None]
  - KLEBSIELLA INFECTION [None]
  - LIVEDO RETICULARIS [None]
  - METABOLIC DISORDER [None]
  - PERIPHERAL COLDNESS [None]
  - SEPSIS [None]
  - STAPHYLOCOCCAL INFECTION [None]
